FAERS Safety Report 9523838 (Version 1)
Quarter: 2013Q1

REPORT INFORMATION
  Report Type: Spontaneous
  Country: US (occurrence: None)
  Receive Date: 20130305
  Receipt Date: 20130305
  Transmission Date: 20140127
  Serious: Yes (Hospitalization)
  Sender: FDA-Public Use
  Company Number: 163-21880-12020291

PATIENT
  Age: 73 Year
  Sex: Female

DRUGS (8)
  1. REVLIMID [Suspect]
     Indication: PLASMA CELL MYELOMA
     Dosage: 10 MG, 1 IN 1 D, PO
     Route: 048
     Dates: start: 20100505, end: 201201
  2. DEXAMETHASONE (DEXAMETHASONE) (UNKNOWN) [Concomitant]
  3. ZOMETA (ZOLEDRONIC ACID) (INJECTION) [Concomitant]
  4. ZESTRIL (LISINOPRIL) (UNKNOWN) [Concomitant]
  5. ZANTAC (RANITIDINE HYDROCHLORIDE) (UNKNOWN)? [Concomitant]
  6. PLAVIX (CLOPIDOGREL SULFATE) (UNKNOWN)? [Concomitant]
  7. LIPITOR (ATORVASTATIN) (UNKNOWN) [Concomitant]
  8. MULTAQ (DRONEDARONE HYDROCHLORIDE) (UNKNOWN) [Concomitant]

REACTIONS (1)
  - Myocardial infarction [None]
